FAERS Safety Report 9768583 (Version 2)
Quarter: 2013Q4

REPORT INFORMATION
  Report Type: Spontaneous
  Country: DK (occurrence: DK)
  Receive Date: 20131218
  Receipt Date: 20131218
  Transmission Date: 20140711
  Serious: Yes (Disabling)
  Sender: FDA-Public Use
  Company Number: DK-GE HEALTHCARE MEDICAL DIAGNOSTICS-OSCN-NO-0908S-0400

PATIENT
  Age: 40 Year
  Sex: Female
  Weight: 58 kg

DRUGS (13)
  1. GADOLINIUM [Suspect]
     Indication: PAIN IN EXTREMITY
     Dates: start: 20060407, end: 20060407
  2. GADOLINIUM [Suspect]
     Indication: PARAESTHESIA
  3. NEORECORMON [Concomitant]
     Dosage: 4000 IE/UGE
  4. MAREVAN [Concomitant]
  5. VEPICOMBIN [Concomitant]
  6. ENALAPRIL [Concomitant]
  7. IPREN [Concomitant]
  8. MANDOLGIN [Concomitant]
  9. BURINEX [Concomitant]
  10. SIMVASTATIN [Concomitant]
  11. NEXIUM [Concomitant]
  12. ASCORBIC ACID [Concomitant]
  13. FOLIC ACID [Concomitant]

REACTIONS (1)
  - Nephrogenic systemic fibrosis [Not Recovered/Not Resolved]
